FAERS Safety Report 17086951 (Version 2)
Quarter: 2019Q4

REPORT INFORMATION
  Report Type: Spontaneous
  Country: US (occurrence: US)
  Receive Date: 20191128
  Receipt Date: 20191128
  Transmission Date: 20200122
  Serious: Yes (Life-Threatening)
  Sender: FDA-Public Use
  Company Number: US-SHIRE-US201934518

PATIENT
  Sex: Female

DRUGS (10)
  1. MAGNESIUM [Concomitant]
     Active Substance: MAGNESIUM
     Indication: CHVOSTEK^S SIGN
  2. FORTEO [Concomitant]
     Active Substance: TERIPARATIDE
     Indication: PRODUCT USED FOR UNKNOWN INDICATION
  3. NATPARA (PARATHYROID HORMONE) [Suspect]
     Active Substance: PARATHYROID HORMONE
     Dosage: 75 MICROGRAM
     Route: 065
     Dates: start: 20170827
  4. CALCITRIOL. [Concomitant]
     Active Substance: CALCITRIOL
     Indication: HYPOCALCAEMIA
  5. CALCIUM [Concomitant]
     Active Substance: CALCIUM
     Indication: TETANY
  6. POTASSIUM [Concomitant]
     Active Substance: POTASSIUM
     Indication: TETANY
  7. CALCIUM [Concomitant]
     Active Substance: CALCIUM
     Indication: CHVOSTEK^S SIGN
  8. MAGNESIUM [Concomitant]
     Active Substance: MAGNESIUM
     Indication: TETANY
  9. NATPARA (PARATHYROID HORMONE) [Suspect]
     Active Substance: PARATHYROID HORMONE
     Indication: HYPOPARATHYROIDISM
     Dosage: 50 MICROGRAM
     Route: 065
     Dates: start: 20170827
  10. POTASSIUM [Concomitant]
     Active Substance: POTASSIUM
     Indication: CHVOSTEK^S SIGN
     Dosage: UNK

REACTIONS (3)
  - Blood calcium abnormal [Unknown]
  - Hypercalcaemia [Unknown]
  - Recalled product [Unknown]
